FAERS Safety Report 4640064-3 (Version None)
Quarter: 2005Q2

REPORT INFORMATION
  Report Type: 
  Country: None (occurrence: None)
  Receive Date: 20050415
  Receipt Date: 20050415
  Transmission Date: 20051028
  Serious: No
  Sender: FDA-Public Use
  Company Number: None

PATIENT
  Age: 52 Year
  Sex: Male
  Weight: 77 kg

DRUGS (6)
  1. ZETIA [Suspect]
     Indication: DRUG INTOLERANCE
     Dosage: 10 MG QDAY ORAL
     Route: 048
     Dates: start: 20040920, end: 20050404
  2. ZETIA [Suspect]
     Indication: HYPERLIPIDAEMIA
     Dosage: 10 MG QDAY ORAL
     Route: 048
     Dates: start: 20040920, end: 20050404
  3. COLACE (DOCUSATE SDOIUM) [Concomitant]
  4. ZANTAC [Concomitant]
  5. HYDROCORTISONE [Concomitant]
  6. SYNTHROID [Concomitant]

REACTIONS (2)
  - BONE PAIN [None]
  - HEADACHE [None]
